FAERS Safety Report 8082047-X (Version None)
Quarter: 2012Q1

REPORT INFORMATION
  Report Type: 
  Country: None (occurrence: None)
  Receive Date: 20120127
  Receipt Date: 20110224
  Transmission Date: 20120608
  Serious: Yes (Other)
  Sender: FDA-Public Use
  Company Number: US-ABBOTT-11P-163-0707743-00

PATIENT
  Sex: Female
  Weight: 80.358 kg

DRUGS (2)
  1. HUMIRA [Suspect]
     Indication: RHEUMATOID ARTHRITIS
     Dates: start: 20100201, end: 20100901
  2. METHOTREXATE [Concomitant]
     Indication: RHEUMATOID ARTHRITIS
     Dates: end: 20100901

REACTIONS (3)
  - RESPIRATORY TRACT CONGESTION [None]
  - STAPHYLOCOCCAL INFECTION [None]
  - SINUSITIS [None]
